FAERS Safety Report 21979421 (Version 2)
Quarter: 2023Q1

REPORT INFORMATION
  Report Type: Spontaneous
  Country: FR (occurrence: FR)
  Receive Date: 20230210
  Receipt Date: 20230326
  Transmission Date: 20230417
  Serious: Yes (Other)
  Sender: FDA-Public Use
  Company Number: FR-JNJFOC-20230201841

PATIENT
  Age: 53 Year
  Sex: Male
  Weight: 93 kg

DRUGS (5)
  1. TECLISTAMAB [Suspect]
     Active Substance: TECLISTAMAB
     Indication: Plasma cell myeloma
     Dosage: 7TH LINE OF TREATMENT, SC (C1J1),
     Route: 058
     Dates: start: 20230116
  2. TECLISTAMAB [Suspect]
     Active Substance: TECLISTAMAB
     Dosage: TIER 2, SINGLE DOSE, C1J1, 30.30 MG
     Route: 058
     Dates: start: 20230120
  3. ACETAMINOPHEN [Concomitant]
     Active Substance: ACETAMINOPHEN
     Route: 048
  4. DEXAMETHASONE [Concomitant]
     Active Substance: DEXAMETHASONE
     Route: 048
  5. DEXCHLORPHENIRAMINE [Concomitant]
     Active Substance: DEXCHLORPHENIRAMINE
     Route: 048

REACTIONS (4)
  - CSF protein increased [Recovered/Resolved]
  - Cytokine release syndrome [Recovered/Resolved]
  - Arthralgia [Recovered/Resolved]
  - Paraesthesia oral [Recovering/Resolving]

NARRATIVE: CASE EVENT DATE: 20230116
